FAERS Safety Report 20482366 (Version 4)
Quarter: 2022Q4

REPORT INFORMATION
  Report Type: Spontaneous
  Country: CZ (occurrence: CZ)
  Receive Date: 20220217
  Receipt Date: 20221013
  Transmission Date: 20230112
  Serious: Yes (Life-Threatening, Other)
  Sender: FDA-Public Use
  Company Number: CZ-009507513-1501CZE002662

PATIENT
  Age: 11 Year
  Sex: Female

DRUGS (23)
  1. FENOFIBRATE [Suspect]
     Active Substance: FENOFIBRATE
     Indication: Oligoastrocytoma
     Dosage: UNK
     Route: 065
     Dates: start: 200901, end: 201010
  2. FENOFIBRATE [Suspect]
     Active Substance: FENOFIBRATE
     Indication: Spinal cord neoplasm
     Dosage: UNK
     Route: 065
  3. FENOFIBRATE [Suspect]
     Active Substance: FENOFIBRATE
     Indication: Anaplastic oligodendroglioma
  4. BEVACIZUMAB [Suspect]
     Active Substance: BEVACIZUMAB
     Indication: Spinal cord neoplasm
     Dosage: UNK
     Route: 065
  5. BEVACIZUMAB [Suspect]
     Active Substance: BEVACIZUMAB
     Indication: Oligoastrocytoma
     Dosage: UNK (COMBAT III/FOR 31 MONTHS )
     Route: 065
     Dates: start: 201001, end: 201010
  6. BEVACIZUMAB [Suspect]
     Active Substance: BEVACIZUMAB
     Indication: Anaplastic oligodendroglioma
  7. CELECOXIB [Suspect]
     Active Substance: CELECOXIB
     Indication: Spinal cord neoplasm
     Dosage: UNK
     Route: 065
     Dates: start: 200803, end: 201010
  8. CELECOXIB [Suspect]
     Active Substance: CELECOXIB
     Indication: Oligoastrocytoma
  9. CELECOXIB [Suspect]
     Active Substance: CELECOXIB
     Indication: Anaplastic oligodendroglioma
  10. ETOPOSIDE [Suspect]
     Active Substance: ETOPOSIDE
     Indication: Spinal cord neoplasm
     Dosage: 25 MILLIGRAM/SQ. METER, ONCE A DAY
     Route: 065
     Dates: start: 200803
  11. ETOPOSIDE [Suspect]
     Active Substance: ETOPOSIDE
     Indication: Oligoastrocytoma
     Dosage: 12.5 MILLIGRAM/SQ. METER, ONCE A DAY
     Route: 065
     Dates: end: 201010
  12. ETOPOSIDE [Suspect]
     Active Substance: ETOPOSIDE
     Indication: Anaplastic oligodendroglioma
  13. TEMOZOLOMIDE [Suspect]
     Active Substance: TEMOZOLOMIDE
     Indication: Oligoastrocytoma
     Dosage: 15 MILLIGRAM/SQ. METER, ONCE A DAY
     Route: 048
     Dates: end: 201010
  14. TEMOZOLOMIDE [Suspect]
     Active Substance: TEMOZOLOMIDE
     Indication: Spinal cord neoplasm
     Dosage: 30 MILLIGRAM/SQ. METER, ONCE A DAY
     Route: 048
     Dates: start: 200803
  15. TEMOZOLOMIDE [Suspect]
     Active Substance: TEMOZOLOMIDE
     Indication: Anaplastic oligodendroglioma
     Dosage: 90 MILLIGRAM/SQ. METER,FOR 42 DAYS
     Route: 065
     Dates: start: 200705, end: 200712
  16. TRETINOIN [Suspect]
     Active Substance: TRETINOIN
     Indication: Oligoastrocytoma
     Dosage: UNK (FOR 31 MONTHS )
     Route: 065
     Dates: start: 200803, end: 201010
  17. TRETINOIN [Suspect]
     Active Substance: TRETINOIN
     Indication: Spinal cord neoplasm
  18. TRETINOIN [Suspect]
     Active Substance: TRETINOIN
     Indication: Anaplastic oligodendroglioma
  19. VITAMIN D [Suspect]
     Active Substance: VITAMIN D NOS
     Indication: Spinal cord neoplasm
     Dosage: UNK
     Route: 065
     Dates: start: 200901, end: 201010
  20. VITAMIN D [Suspect]
     Active Substance: VITAMIN D NOS
     Indication: Oligoastrocytoma
  21. VITAMIN D [Suspect]
     Active Substance: VITAMIN D NOS
     Indication: Anaplastic oligodendroglioma
  22. VINBLASTINE [Suspect]
     Active Substance: VINBLASTINE
     Indication: Oligoastrocytoma
     Dosage: 6 MILLIGRAM/SQ. METER, EVERY WEEK
     Route: 065
     Dates: start: 201102
  23. VINBLASTINE [Suspect]
     Active Substance: VINBLASTINE
     Indication: Anaplastic oligodendroglioma
     Dosage: 2 MILLIGRAM/SQ. METER, EVERY WEEK
     Route: 065
     Dates: end: 201205

REACTIONS (3)
  - Myelosuppression [Recovered/Resolved]
  - Product administration error [Unknown]
  - Product use in unapproved indication [Unknown]
